FAERS Safety Report 5519161-6 (Version None)
Quarter: 2007Q4

REPORT INFORMATION
  Report Type: 
  Country: None (occurrence: None)
  Receive Date: 20071116
  Receipt Date: 20071107
  Transmission Date: 20080405
  Serious: Yes (Hospitalization, Other)
  Sender: FDA-Public Use
  Company Number: AU-NOVOPROD-269159

PATIENT

DRUGS (6)
  1. NOVOSEVEN [Suspect]
     Indication: HAEMORRHAGE
     Route: 042
     Dates: start: 20070628
  2. APROTININ [Concomitant]
  3. PROTAMINE SULFATE [Concomitant]
  4. HEPARIN [Concomitant]
  5. PROTHROMBINEX [Concomitant]
  6. CALCIUM CHLORIDE                   /00203801/ [Concomitant]

REACTIONS (4)
  - ATRIAL FLUTTER [None]
  - DIARRHOEA [None]
  - HAEMATOMA [None]
  - PLEURAL EFFUSION [None]
